FAERS Safety Report 4660013-1 (Version None)
Quarter: 2005Q2

REPORT INFORMATION
  Report Type: 
  Country: None (occurrence: None)
  Receive Date: 20050510
  Receipt Date: 20050429
  Transmission Date: 20051028
  Serious: Yes (Other)
  Sender: FDA-Public Use
  Company Number: 2005068380

PATIENT
  Age: 72 Year
  Sex: Female
  Weight: 72.5755 kg

DRUGS (14)
  1. DETROL LA [Suspect]
     Indication: URINARY INCONTINENCE
     Dosage: 4 MG (4 MG, 1 IN 1 D), ORAL
     Route: 048
     Dates: start: 20050428
  2. CARBAMAZEPINE [Concomitant]
  3. TOPIRAMATE [Concomitant]
  4. IMIPRAMINE [Concomitant]
  5. WELCHOL [Concomitant]
  6. FOSINOPRIL SODIUM [Concomitant]
  7. CLOPIDOGREL BISULFATE [Concomitant]
  8. ASPIRIN [Concomitant]
  9. RISEDRONATE SODIUM (RISEDRONATE SODIUM) [Concomitant]
  10. ASCORBIC ACID [Concomitant]
  11. TOCOPHEROL (TOCOPHEROL) [Concomitant]
  12. CYANOCOBALAMIN [Concomitant]
  13. COSAMIN (CHONDROITIN SULFATE, GLUCOSAMINE HYDROCHLORIDE, MANGANESE ASC [Concomitant]
  14. UBIDECARENONE (UBIDECARENONE) [Concomitant]

REACTIONS (2)
  - CONVULSION [None]
  - POLLAKIURIA [None]
